FAERS Safety Report 6030624-X (Version None)
Quarter: 2009Q1

REPORT INFORMATION
  Report Type: 
  Country: None (occurrence: None)
  Receive Date: 20090106
  Receipt Date: 20090106
  Transmission Date: 20090719
  Serious: Yes (Disabling)
  Sender: FDA-Public Use
  Company Number: None

PATIENT
  Age: 69 Year
  Sex: Female
  Weight: 74.8435 kg

DRUGS (1)
  1. ZETIA [Suspect]
     Indication: BLOOD CHOLESTEROL INCREASED
     Dosage: 1 TABLET DAILY PO
     Route: 048
     Dates: start: 20071101, end: 20081215

REACTIONS (5)
  - ARTHRALGIA [None]
  - BONE PAIN [None]
  - DRUG INEFFECTIVE [None]
  - GAIT DISTURBANCE [None]
  - PAIN [None]
